FAERS Safety Report 9414310 (Version 1)
Quarter: 2013Q3

REPORT INFORMATION
  Report Type: Spontaneous
  Country: FR (occurrence: FR)
  Receive Date: 20130723
  Receipt Date: 20130723
  Transmission Date: 20140515
  Serious: Yes (Life-Threatening)
  Sender: FDA-Public Use
  Company Number: FR-ROCHE-1247270

PATIENT
  Age: 63 Year
  Sex: Female

DRUGS (14)
  1. BACTRIM [Suspect]
     Indication: PNEUMOCYSTIS JIROVECII PNEUMONIA
     Route: 042
     Dates: start: 20130604, end: 20130609
  2. CYMEVAN [Suspect]
     Indication: CYTOMEGALOVIRUS INFECTION
     Route: 042
     Dates: start: 20130607, end: 20130609
  3. INEXIUM [Suspect]
     Indication: PRODUCT USED FOR UNKNOWN INDICATION
     Route: 048
     Dates: start: 20130604, end: 20130610
  4. CETIRIZINE [Suspect]
     Indication: URTICARIA CHRONIC
     Route: 065
     Dates: start: 201304, end: 20130610
  5. LEDERFOLINE [Suspect]
     Indication: HAEMATOTOXICITY
     Route: 048
     Dates: start: 20130607, end: 20130611
  6. SOLUPRED (FRANCE) [Concomitant]
  7. LOVENOX [Concomitant]
  8. DOLIPRANE [Concomitant]
  9. LEDERFOLINE [Concomitant]
  10. METHYLPREDNISOLONE [Concomitant]
  11. POLARAMINE [Concomitant]
  12. PENTACARINAT [Concomitant]
  13. FOSCAVIR [Concomitant]
  14. WELLVONE [Concomitant]

REACTIONS (5)
  - Linear IgA disease [Recovering/Resolving]
  - Face oedema [Recovering/Resolving]
  - Tongue oedema [Recovering/Resolving]
  - Pruritus [Recovering/Resolving]
  - Eosinophilia [Recovered/Resolved with Sequelae]
